FAERS Safety Report 7913909-9 (Version None)
Quarter: 2011Q4

REPORT INFORMATION
  Report Type: 
  Country: None (occurrence: None)
  Receive Date: 20111115
  Receipt Date: 20111102
  Transmission Date: 20120403
  Serious: Yes (Hospitalization)
  Sender: FDA-Public Use
  Company Number: JP-PFIZER INC-2011224311

PATIENT
  Age: 68 Year
  Sex: Male

DRUGS (13)
  1. LOSARTAN POTASSIUM AND HYDROCHLOROTHIAZIDE [Concomitant]
  2. ASPIRIN [Concomitant]
  3. MAGNESIUM OXIDE [Concomitant]
  4. AMIODARONE HCL [Suspect]
     Indication: VENTRICULAR TACHYCARDIA
     Dosage: 1.25 MG/ML AT 10 ML/MINUTE
     Route: 042
  5. AMIODARONE HCL [Suspect]
     Dosage: 1.50 MG/ML AT 33 ML/HR
     Route: 042
  6. BISOPROLOL FUMARATE [Concomitant]
  7. ROSUVASTATIN [Concomitant]
  8. WARFARIN [Concomitant]
  9. AMIODARONE HCL [Suspect]
     Dosage: 1.50 MG/ML AT 17 ML/HR
     Route: 042
  10. LASIX [Concomitant]
  11. AMIODARONE HCL [Suspect]
     Indication: VENTRICULAR TACHYCARDIA
     Dosage: 200 MG, 2X/DAY
     Route: 048
     Dates: start: 20081201, end: 20101201
  12. RABEPRAZOLE SODIUM [Concomitant]
  13. NEO-LOTAN [Concomitant]

REACTIONS (2)
  - WEIGHT DECREASED [None]
  - PNEUMONIA [None]
